FAERS Safety Report 10742814 (Version 3)
Quarter: 2018Q1

REPORT INFORMATION
  Report Type: Report from Study
  Country: JP (occurrence: JP)
  Receive Date: 20150127
  Receipt Date: 20180326
  Transmission Date: 20180508
  Serious: Yes (Hospitalization, Other)
  Sender: FDA-Public Use
  Company Number: JP-GILEAD-2015-0133158

PATIENT
  Age: 76 Year
  Sex: Female

DRUGS (35)
  1. SELECTOL [Concomitant]
     Active Substance: CELIPROLOL
     Dosage: UNK
     Dates: end: 20130501
  2. DOGMATYL [Concomitant]
     Active Substance: SULPIRIDE
     Dosage: UNK
     Dates: end: 20150213
  3. ELASPOL [Concomitant]
     Active Substance: SIVELESTAT SODIUM
     Dosage: UNK
     Dates: start: 20130827, end: 20130827
  4. CEFAZOLIN SODIUM. [Concomitant]
     Active Substance: CEFAZOLIN SODIUM
     Dosage: UNK
     Dates: start: 20141202, end: 20141203
  5. ONEALFA [Concomitant]
     Active Substance: ALFACALCIDOL
     Dosage: UNK
     Dates: start: 20130913
  6. ADALAT [Concomitant]
     Active Substance: NIFEDIPINE
     Dosage: UNK
     Dates: start: 20150313
  7. SOL-MELCORT [Suspect]
     Active Substance: METHYLPREDNISOLONE SODIUM SUCCINATE
     Dosage: UNK
     Route: 042
     Dates: start: 20130827, end: 20130827
  8. WARFARIN [Concomitant]
     Active Substance: WARFARIN
     Dosage: UNK
  9. FUROSEMIDE. [Concomitant]
     Active Substance: FUROSEMIDE
     Dosage: UNK
     Dates: end: 20140221
  10. AVAPRO [Concomitant]
     Active Substance: IRBESARTAN
     Dosage: UNK
     Dates: start: 20140228
  11. OXYGEN. [Concomitant]
     Active Substance: OXYGEN
  12. DILTIAZEM HYDROCHLORIDE. [Concomitant]
     Active Substance: DILTIAZEM HYDROCHLORIDE
     Dosage: UNK
     Dates: end: 20140223
  13. ALFAROL [Concomitant]
     Active Substance: ALFACALCIDOL
     Dosage: UNK
     Dates: end: 20141224
  14. RASENAZOLIN [Concomitant]
     Active Substance: CEFAZOLIN SODIUM
     Indication: PROPHYLAXIS
     Dosage: UNK
     Dates: start: 20130820, end: 20130821
  15. BERAPROST SODIUM [Concomitant]
     Active Substance: BERAPROST SODIUM
     Dosage: UNK
     Dates: start: 20130913, end: 20150407
  16. AMLODIPINE [Concomitant]
     Active Substance: AMLODIPINE BESYLATE
     Dosage: UNK
     Dates: end: 20130812
  17. SOL-MELCORT [Suspect]
     Active Substance: METHYLPREDNISOLONE SODIUM SUCCINATE
     Indication: PULMONARY ARTERY THERAPEUTIC PROCEDURE
     Dosage: UNK
     Route: 042
     Dates: start: 20130820, end: 20130821
  18. ELASPOL [Concomitant]
     Active Substance: SIVELESTAT SODIUM
     Indication: PULMONARY ARTERY THERAPEUTIC PROCEDURE
     Dosage: UNK
     Dates: start: 20130820, end: 20130821
  19. AMBRISENTAN [Suspect]
     Active Substance: AMBRISENTAN
     Indication: PULMONARY HYPERTENSION
     Dosage: 2.5 MG, BID
     Route: 048
     Dates: start: 20110416, end: 20110419
  20. AMBRISENTAN [Suspect]
     Active Substance: AMBRISENTAN
     Dosage: UNK, BID
     Route: 048
     Dates: start: 20140225, end: 20140225
  21. WARFARIN [Concomitant]
     Active Substance: WARFARIN
     Dosage: UNK
  22. DIOVAN [Concomitant]
     Active Substance: VALSARTAN
     Dosage: UNK
     Dates: end: 20140227
  23. AMBRISENTAN [Suspect]
     Active Substance: AMBRISENTAN
     Dosage: 5 MG, BID
     Route: 048
     Dates: start: 20110421, end: 20140224
  24. AMBRISENTAN [Suspect]
     Active Substance: AMBRISENTAN
     Dosage: 2.5 MG, BID
     Route: 048
     Dates: start: 20140226, end: 20150409
  25. AMBRISENTAN [Suspect]
     Active Substance: AMBRISENTAN
     Dosage: 2.5 MG, QD
     Route: 048
     Dates: start: 20150410, end: 20150508
  26. SOL-MELCORT [Suspect]
     Active Substance: METHYLPREDNISOLONE SODIUM SUCCINATE
     Dosage: UNK
     Route: 042
     Dates: start: 20130903, end: 20130903
  27. BERAPROST SODIUM [Concomitant]
     Active Substance: BERAPROST SODIUM
     Indication: PULMONARY HYPERTENSION
     Dosage: UNK
     Dates: end: 20130912
  28. TAKEPRON [Concomitant]
     Active Substance: LANSOPRAZOLE
     Indication: GASTRITIS PROPHYLAXIS
     Dosage: UNK
  29. ETISEDAN [Concomitant]
     Active Substance: ETIZOLAM
     Dosage: UNK
     Dates: end: 20130812
  30. RASENAZOLIN [Concomitant]
     Active Substance: CEFAZOLIN SODIUM
     Indication: PULMONARY ARTERY THERAPEUTIC PROCEDURE
     Dosage: UNK
     Dates: start: 20130827, end: 20130827
  31. AMBRISENTAN [Suspect]
     Active Substance: AMBRISENTAN
     Dosage: 2.5 MG, TID
     Route: 048
     Dates: start: 20110420, end: 20110420
  32. WARFARIN [Concomitant]
     Active Substance: WARFARIN
     Indication: THROMBOSIS PROPHYLAXIS
     Dosage: UNK
  33. SILECE [Concomitant]
     Active Substance: FLUNITRAZEPAM
     Dosage: UNK
     Dates: end: 20150119
  34. CEFAZOLIN SODIUM. [Concomitant]
     Active Substance: CEFAZOLIN SODIUM
     Indication: PROPHYLAXIS
     Dosage: UNK
     Dates: start: 20140218, end: 20140219
  35. CEFAZOLIN SODIUM. [Concomitant]
     Active Substance: CEFAZOLIN SODIUM
     Dosage: UNK
     Dates: start: 20141209, end: 20141209

REACTIONS (6)
  - Off label use [Recovered/Resolved]
  - Nasal congestion [Recovered/Resolved]
  - Renal impairment [Recovering/Resolving]
  - Anaemia [Recovering/Resolving]
  - Drug hypersensitivity [Recovered/Resolved]
  - Drug hypersensitivity [Recovered/Resolved]

NARRATIVE: CASE EVENT DATE: 20110416
